FAERS Safety Report 18328941 (Version 1)
Quarter: 2020Q3

REPORT INFORMATION
  Report Type: Spontaneous
  Country: US (occurrence: US)
  Receive Date: 20200929
  Receipt Date: 20200929
  Transmission Date: 20201103
  Serious: No
  Sender: FDA-Public Use
  Company Number: None

PATIENT
  Age: 68 Year
  Sex: Male
  Weight: 141.75 kg

DRUGS (1)
  1. CEFAZOLIN [Suspect]
     Active Substance: CEFAZOLIN
     Indication: DRUG THERAPY
     Dosage: ?          QUANTITY:2 INJECTION(S);OTHER FREQUENCY:AS DIRECTED;?
     Route: 042
     Dates: start: 20200925, end: 20200925

REACTIONS (4)
  - Infusion site erythema [None]
  - Incorrect drug administration rate [None]
  - Infusion site pain [None]
  - Pain in extremity [None]

NARRATIVE: CASE EVENT DATE: 20200925
